FAERS Safety Report 6886544-1 (Version None)
Quarter: 2010Q3

REPORT INFORMATION
  Report Type: 
  Country: None (occurrence: None)
  Receive Date: 20100730
  Receipt Date: 20100720
  Transmission Date: 20110219
  Serious: No
  Sender: FDA-Public Use
  Company Number: US-BIOGENIDEC-2010BI008184

PATIENT
  Age: 33 Year
  Sex: Female

DRUGS (5)
  1. TYSABRI [Suspect]
     Indication: MULTIPLE SCLEROSIS
     Route: 042
     Dates: start: 20080617, end: 20090702
  2. TYSABRI [Suspect]
     Route: 042
     Dates: start: 20100409
  3. PENTASA [Concomitant]
     Indication: COLITIS ULCERATIVE
  4. SYNTHROID [Concomitant]
     Indication: HYPOTHYROIDISM
  5. IMITREX [Concomitant]
     Indication: MIGRAINE

REACTIONS (5)
  - AMENORRHOEA [None]
  - CYSTITIS INTERSTITIAL [None]
  - PAIN [None]
  - POLYCYSTIC OVARIES [None]
  - SINUSITIS [None]
